FAERS Safety Report 20741398 (Version 2)
Quarter: 2022Q2

REPORT INFORMATION
  Report Type: Spontaneous
  Country: US (occurrence: US)
  Receive Date: 20220422
  Receipt Date: 20220530
  Transmission Date: 20220721
  Serious: Yes (Other)
  Sender: FDA-Public Use
  Company Number: US-Blueprint Medicines Corporation-SP-US-2022-001131

PATIENT
  Sex: Female

DRUGS (3)
  1. AYVAKIT [Suspect]
     Active Substance: AVAPRITINIB
     Indication: Systemic mastocytosis
     Route: 048
     Dates: start: 20210426
  2. AYVAKIT [Suspect]
     Active Substance: AVAPRITINIB
     Dosage: TAKE 1 TABLET OF 25 MG DAILY ALTERNATED WITH 50MG TABLET EVERY OTHER DAY AS DIRECTED
     Route: 048
  3. AYVAKIT [Suspect]
     Active Substance: AVAPRITINIB
     Dosage: TAKE 1 TABLET OF 25 MG DAILY ALTERNATED WITH 50MG TABLET EVERY OTHER DAY AS DIRECTED
     Route: 048

REACTIONS (6)
  - Hepatic cirrhosis [Unknown]
  - Drug ineffective [Unknown]
  - Platelet count decreased [Unknown]
  - Haemoglobin decreased [Unknown]
  - Gastric disorder [Unknown]
  - Off label use [Unknown]
